FAERS Safety Report 10423000 (Version 1)
Quarter: 2014Q3

REPORT INFORMATION
  Report Type: Spontaneous
  Country: US (occurrence: None)
  Receive Date: 20140722
  Receipt Date: 20140722
  Transmission Date: 20150326
  Serious: No
  Sender: FDA-Public Use
  Company Number: 163-10004-14053527

PATIENT
  Age: 30 Year
  Sex: Female
  Weight: 76.2 kg

DRUGS (3)
  1. OTEZLA [Suspect]
     Active Substance: APREMILAST
     Indication: PSORIATIC ARTHROPATHY
     Dosage: 60 MG, 2 IN 1 D, PO?
     Route: 048
     Dates: start: 20140426
  2. NOVOLOG (INSULIN ASPART) (UNKNOWN) [Concomitant]
  3. LYRICA (PREGABALIN) (UNKNOWN) [Concomitant]

REACTIONS (2)
  - Headache [None]
  - Decreased appetite [None]

NARRATIVE: CASE EVENT DATE: 20140503
